FAERS Safety Report 23170054 (Version 3)
Quarter: 2023Q4

REPORT INFORMATION
  Report Type: Spontaneous
  Country: US (occurrence: US)
  Receive Date: 20231110
  Receipt Date: 20231125
  Transmission Date: 20240110
  Serious: Yes (Death, Hospitalization, Other)
  Sender: FDA-Public Use
  Company Number: US-UNITED THERAPEUTICS-UNT-2023-031245

PATIENT
  Age: 4 Year
  Sex: Female
  Weight: 20.494 kg

DRUGS (14)
  1. REMODULIN [Suspect]
     Active Substance: TREPROSTINIL
     Indication: Pulmonary arterial hypertension
     Dosage: 0.110 ?G/KG (INFUSION RATE 0.048ML/HR), CONTINUING
     Route: 058
  2. REMODULIN [Suspect]
     Active Substance: TREPROSTINIL
     Dosage: UNK (0.050 ML/HR), CONTINUING
     Route: 058
  3. REMODULIN [Suspect]
     Active Substance: TREPROSTINIL
     Dosage: UNK, CONTINUING
     Route: 058
     Dates: start: 20191114
  4. LASIX [Suspect]
     Active Substance: FUROSEMIDE
     Indication: Hypervolaemia
     Dosage: 10 MG, TID
     Route: 048
     Dates: start: 202310
  5. LASIX [Suspect]
     Active Substance: FUROSEMIDE
     Indication: Dyspnoea
     Dosage: 20 MG, BID (MAY ALSO TAKE 2 ML AS NEEDED) (20 MG, BID FOR 3 DAYS THEN 10 MG BID)
     Route: 048
  6. LASIX [Suspect]
     Active Substance: FUROSEMIDE
     Indication: Swelling
  7. AMBRISENTAN [Concomitant]
     Active Substance: AMBRISENTAN
     Indication: Pulmonary arterial hypertension
     Dosage: 2.5 MG, QD (0.5 TABLET, ONCE DAILY)
     Route: 048
  8. ASPIRIN [Concomitant]
     Active Substance: ASPIRIN
     Indication: Product used for unknown indication
     Dosage: 40.5 MG, QD (0.5 MG TABLET)
     Route: 048
  9. IRON\VITAMINS [Concomitant]
     Active Substance: IRON\VITAMINS
     Indication: Product used for unknown indication
     Dosage: 1 ML, QD (ONCE DAILY)
     Route: 048
  10. POLYETHYLENE GLYCOL [Concomitant]
     Active Substance: POLYETHYLENE GLYCOL
     Indication: Product used for unknown indication
     Dosage: 1/2 CAPFUL IN LIQUID, QD (ONCE DAILY)
     Route: 048
  11. SILDENAFIL [Concomitant]
     Active Substance: SILDENAFIL
     Indication: Pulmonary arterial hypertension
     Dosage: 10 MG, TID (4 ML THREE TIMES DAILY)
     Route: 048
  12. SODIUM CHLORIDE [Concomitant]
     Active Substance: SODIUM CHLORIDE
     Indication: Product used for unknown indication
     Dosage: 4 ML, BID (2 TIMES DAILY)
  13. ALBUTEROL SULFATE [Concomitant]
     Active Substance: ALBUTEROL SULFATE
     Indication: Dyspnoea
     Dosage: INHALE 2 PUFF BY MOUTH EVERY FOUR HOUR, PRN
  14. ALBUTEROL SULFATE [Concomitant]
     Active Substance: ALBUTEROL SULFATE
     Dosage: INHALE 2 PUFF BY MOUTH, BID (INHALE 2 PUFF WHEN WELL INCREASE TO 2 PUFF BY MOUTH FOUR TIMES A DAY WH

REACTIONS (7)
  - Cardiac failure [Fatal]
  - Pulmonary hypertension [Fatal]
  - Ascites [Not Recovered/Not Resolved]
  - Right ventricular dysfunction [Not Recovered/Not Resolved]
  - Tricuspid valve incompetence [Unknown]
  - Bronchiectasis [Unknown]
  - Therapy non-responder [Unknown]

NARRATIVE: CASE EVENT DATE: 20231001
